FAERS Safety Report 8098416-8 (Version None)
Quarter: 2012Q1

REPORT INFORMATION
  Report Type: 
  Country: None (occurrence: None)
  Receive Date: 20120131
  Receipt Date: 20120124
  Transmission Date: 20120608
  Serious: Yes (Other)
  Sender: FDA-Public Use
  Company Number: JP-MERCK-1112USA01818

PATIENT
  Age: 60 Year
  Sex: Female

DRUGS (3)
  1. LAMISIL [Suspect]
     Route: 048
     Dates: start: 20111201, end: 20111201
  2. GLYBURIDE [Suspect]
     Indication: TYPE 2 DIABETES MELLITUS
     Route: 048
     Dates: end: 20111201
  3. JANUVIA [Suspect]
     Indication: TYPE 2 DIABETES MELLITUS
     Route: 048
     Dates: end: 20111201

REACTIONS (2)
  - HYPOGLYCAEMIA [None]
  - HEPATIC FUNCTION ABNORMAL [None]
